FAERS Safety Report 25607668 (Version 2)
Quarter: 2025Q4

REPORT INFORMATION
  Report Type: Spontaneous
  Country: JP (occurrence: JP)
  Receive Date: 20250725
  Receipt Date: 20251110
  Transmission Date: 20260118
  Serious: No
  Sender: ALEXION PHARMACEUTICALS
  Company Number: JP-ALXN-202507JPN009411JPAA

PATIENT
  Age: 6 Decade
  Sex: Female

DRUGS (3)
  1. ULTOMIRIS [Suspect]
     Active Substance: RAVULIZUMAB-CWVZ
     Indication: Paroxysmal nocturnal haemoglobinuria
     Dosage: 2400 MILLIGRAM, Q2W
     Route: 065
     Dates: start: 20200428, end: 20200428
  2. ULTOMIRIS [Suspect]
     Active Substance: RAVULIZUMAB-CWVZ
     Dosage: 3000 MILLIGRAM, Q8W
     Route: 065
     Dates: start: 20200512, end: 20231128
  3. PREDONINE [Concomitant]
     Active Substance: PREDNISOLONE
     Indication: Paroxysmal nocturnal haemoglobinuria
     Dosage: 5 MILLIGRAM, QD
     Dates: start: 20230226, end: 20240610

REACTIONS (1)
  - Reticulocyte count increased [Recovered/Resolved]

NARRATIVE: CASE EVENT DATE: 20231128
